FAERS Safety Report 6315743-2 (Version None)
Quarter: 2009Q3

REPORT INFORMATION
  Report Type: 
  Country: None (occurrence: None)
  Receive Date: 20090819
  Receipt Date: 20090326
  Transmission Date: 20100115
  Serious: No
  Sender: FDA-Public Use
  Company Number: US-BAUSCH-2009BL001373

PATIENT
  Sex: Male

DRUGS (1)
  1. CROMOLYN SODIUM [Suspect]
     Indication: DRUG USE FOR UNKNOWN INDICATION
     Route: 045
     Dates: end: 20090320

REACTIONS (1)
  - BLOOD PRESSURE INCREASED [None]
